FAERS Safety Report 7702337-7 (Version None)
Quarter: 2011Q3

REPORT INFORMATION
  Report Type: 
  Country: None (occurrence: None)
  Receive Date: 20110822
  Receipt Date: 20110810
  Transmission Date: 20111222
  Serious: Yes (Hospitalization, Other)
  Sender: FDA-Public Use
  Company Number: PHHY2011IT72917

PATIENT
  Age: 49 Year
  Sex: Male

DRUGS (3)
  1. METHADONE HYDROCHLORIDE [Suspect]
     Route: 042
  2. BENZODIAZEPINES [Concomitant]
     Route: 048
  3. ALCOHOL [Concomitant]
     Route: 048

REACTIONS (9)
  - HYPERCAPNIA [None]
  - COMA [None]
  - DISTURBANCE IN ATTENTION [None]
  - LEUKOENCEPHALOPATHY [None]
  - HYPOXIA [None]
  - COGNITIVE DISORDER [None]
  - CENTRAL NERVOUS SYSTEM LESION [None]
  - RESPIRATORY FAILURE [None]
  - UNRESPONSIVE TO STIMULI [None]
